FAERS Safety Report 10478189 (Version 1)
Quarter: 2014Q3

REPORT INFORMATION
  Report Type: Spontaneous
  Country: PT (occurrence: PT)
  Receive Date: 20140926
  Receipt Date: 20140926
  Transmission Date: 20150326
  Serious: Yes (Other)
  Sender: FDA-Public Use
  Company Number: PT-WATSON-2014-20552

PATIENT
  Age: 58 Year
  Sex: Male

DRUGS (1)
  1. CYCLOSPORINE (UNKNOWN) [Suspect]
     Active Substance: CYCLOSPORINE
     Indication: PSORIASIS
     Dosage: 4 MG/KG, DAILY
     Route: 065

REACTIONS (2)
  - Secondary syphilis [Recovered/Resolved]
  - Psoriasis [Recovering/Resolving]
